FAERS Safety Report 25700459 (Version 1)
Quarter: 2025Q3

REPORT INFORMATION
  Report Type: Spontaneous
  Country: US (occurrence: US)
  Receive Date: 20250819
  Receipt Date: 20250819
  Transmission Date: 20251020
  Serious: Yes (Other)
  Sender: MALLINCKRODT
  Company Number: US-MALLINCKRODT-MNK202504898

PATIENT
  Sex: Female

DRUGS (2)
  1. CORTICOTROPIN [Suspect]
     Active Substance: CORTICOTROPIN
     Indication: Pemphigoid
     Route: 058
     Dates: start: 202304
  2. YUFLYMA [Concomitant]
     Active Substance: ADALIMUMAB-AATY

REACTIONS (3)
  - Pemphigoid [Unknown]
  - Condition aggravated [Unknown]
  - Arthropathy [Unknown]
